FAERS Safety Report 6251114-5 (Version None)
Quarter: 2009Q2

REPORT INFORMATION
  Report Type: 
  Country: None (occurrence: None)
  Receive Date: 20090630
  Receipt Date: 20090624
  Transmission Date: 20091009
  Serious: Yes (Hospitalization)
  Sender: FDA-Public Use
  Company Number: JP-WYE-H09735709

PATIENT
  Sex: Female

DRUGS (11)
  1. ZOSYN [Suspect]
     Indication: CELLULITIS
     Route: 041
     Dates: start: 20090514, end: 20090519
  2. SIMVASTATIN [Concomitant]
     Route: 048
     Dates: start: 20061123
  3. BISOPROLOL FUMARATE [Concomitant]
     Route: 048
     Dates: start: 20070726
  4. ENALAPRIL MALEATE [Concomitant]
     Route: 048
     Dates: start: 20070814
  5. OMEPRAZOLE [Concomitant]
     Route: 048
     Dates: start: 20090510
  6. YOKUKAN-SAN [Concomitant]
     Route: 048
     Dates: start: 20090227
  7. ASPIRIN [Concomitant]
     Route: 048
     Dates: start: 20090227
  8. BROTIZOLAM [Concomitant]
     Route: 048
     Dates: start: 20090308
  9. LASIX [Concomitant]
     Route: 048
     Dates: start: 20090414
  10. PENTCILLIN [Suspect]
     Indication: CELLULITIS
     Route: 041
     Dates: start: 20090512, end: 20090513
  11. BENIDIPINE HYDROCHLORIDE [Concomitant]
     Route: 048
     Dates: start: 20080415

REACTIONS (3)
  - AMYLOIDOSIS [None]
  - DIARRHOEA [None]
  - ENTEROCOLITIS [None]
